FAERS Safety Report 7579719-X (Version None)
Quarter: 2011Q2

REPORT INFORMATION
  Report Type: 
  Country: None (occurrence: None)
  Receive Date: 20110629
  Receipt Date: 20110623
  Transmission Date: 20111010
  Serious: Yes (Life-Threatening, Hospitalization, Other)
  Sender: FDA-Public Use
  Company Number: US-ASTELLAS-2011US003256

PATIENT
  Sex: Male
  Weight: 71 kg

DRUGS (1)
  1. AMBISOME [Suspect]
     Indication: ZYGOMYCOSIS
     Dosage: 3X WEEKLY
     Route: 042
     Dates: end: 20110615

REACTIONS (12)
  - RENAL FAILURE [None]
  - GRAFT VERSUS HOST DISEASE [None]
  - CARDIAC ARREST [None]
  - CAECITIS [None]
  - RASH [None]
  - GASTROINTESTINAL HAEMORRHAGE [None]
  - ESCHERICHIA INFECTION [None]
  - HYPOTENSION [None]
  - HAEMOPTYSIS [None]
  - PYREXIA [None]
  - RENAL IMPAIRMENT [None]
  - BLOOD IMMUNOGLOBULIN G DECREASED [None]
